FAERS Safety Report 23486684 (Version 1)
Quarter: 2024Q1

REPORT INFORMATION
  Report Type: Spontaneous
  Country: US (occurrence: None)
  Receive Date: 20240205
  Receipt Date: 20240205
  Transmission Date: 20240410
  Serious: Yes (Hospitalization)
  Sender: FDA-Public Use
  Company Number: None

PATIENT
  Age: 89 Year
  Sex: Female
  Weight: 43.8 kg

DRUGS (9)
  1. DRONABINOL [Suspect]
     Active Substance: DRONABINOL
     Dosage: FREQUENCY : TWICE A DAY;?
     Route: 048
     Dates: start: 20230802, end: 20230804
  2. CEFTRIAXONE [Concomitant]
     Active Substance: CEFTRIAXONE\CEFTRIAXONE SODIUM
     Dates: start: 20230729, end: 20230803
  3. DOXYCYCLINE [Concomitant]
     Active Substance: DOXYCYCLINE
     Dates: start: 20230801, end: 20230803
  4. AMLODIPINE [Concomitant]
     Active Substance: AMLODIPINE BESYLATE
     Dates: start: 20230729, end: 20230807
  5. GABAPENTIN [Concomitant]
     Active Substance: GABAPENTIN
     Dates: start: 20230729, end: 20230807
  6. DONEPEZIL [Concomitant]
     Active Substance: DONEPEZIL
     Dates: start: 20230729, end: 20230807
  7. METHOCARBAMOL [Concomitant]
     Active Substance: METHOCARBAMOL
     Dates: start: 20230729, end: 20230802
  8. PANTOPRAZOLE [Concomitant]
     Active Substance: PANTOPRAZOLE
     Dates: start: 20230729, end: 20230807
  9. SERTRALINE [Concomitant]
     Active Substance: SERTRALINE HYDROCHLORIDE
     Dates: start: 20230729, end: 20230807

REACTIONS (1)
  - Seizure [None]

NARRATIVE: CASE EVENT DATE: 20230804
